FAERS Safety Report 6537572-7 (Version None)
Quarter: 2010Q1

REPORT INFORMATION
  Report Type: 
  Country: None (occurrence: None)
  Receive Date: 20100114
  Receipt Date: 20100108
  Transmission Date: 20100710
  Serious: Yes (Hospitalization)
  Sender: FDA-Public Use
  Company Number: DE-ROCHE-678956

PATIENT
  Sex: Female
  Weight: 65 kg

DRUGS (8)
  1. BEVACIZUMAB [Suspect]
     Dosage: DOSAGE FORM: VIALS, LAST DOSE PRIOR TO SAE: 28 DECEMBER 2009.
     Route: 042
     Dates: start: 20090908
  2. TRASTUZUMAB [Suspect]
     Dosage: FORM: VIALS, TOTAL DOSE: 380 MG, LAST DOSE PRIOR TO SAE: 28 DECEMBER 2009
     Route: 042
     Dates: start: 20090908
  3. CARBOPLATIN [Suspect]
     Dosage: FORM: VIALS, TOTAL DOSE: 637 MG, DOSE LEVEL: 06 AUC,  LAST DOSE PRIOR TO SAE: 28 DECEMBER 2009
     Route: 042
     Dates: start: 20090908
  4. DOCETAXEL [Suspect]
     Dosage: FORM: VIALS, TOTAL DOSE: 128 MG, LAST DOSE PRIOR TO SAE: 28 DECEMBER 2009
     Route: 042
     Dates: start: 20090908
  5. DEXAMETHASONE TAB [Concomitant]
     Dates: start: 20091228, end: 20091228
  6. DEXAMETHASONE TAB [Concomitant]
     Dates: start: 20091229, end: 20100102
  7. KEVATRIL [Concomitant]
     Dates: start: 20091228, end: 20091228
  8. CLEMASTINE FUMARATE [Concomitant]
     Dates: start: 20091228, end: 20091228

REACTIONS (2)
  - GENERAL PHYSICAL HEALTH DETERIORATION [None]
  - LEUKOPENIA [None]
